FAERS Safety Report 6964623-8 (Version None)
Quarter: 2010Q3

REPORT INFORMATION
  Report Type: 
  Country: None (occurrence: None)
  Receive Date: 20100903
  Receipt Date: 20100823
  Transmission Date: 20110219
  Serious: Yes (Hospitalization, Other)
  Sender: FDA-Public Use
  Company Number: US-BAYER-201030182NA

PATIENT
  Age: 26 Year
  Sex: Male

DRUGS (8)
  1. BETASERON [Suspect]
     Indication: MULTIPLE SCLEROSIS
     Dosage: TOTAL DAILY DOSE: 8 MIU
     Route: 058
     Dates: start: 20091102
  2. POTASSIUM [Concomitant]
  3. ALIDECTONE [Concomitant]
  4. COREG EXTENDED RELEASE [Concomitant]
  5. ASPIRIN [Concomitant]
  6. WARFARIN SODIUM [Concomitant]
  7. LASIX [Concomitant]
  8. ACTIPRIL [Concomitant]

REACTIONS (8)
  - ATRIOVENTRICULAR BLOCK [None]
  - CARDIOMYOPATHY [None]
  - CHEST PAIN [None]
  - COLD SWEAT [None]
  - HEART RATE INCREASED [None]
  - HEART RATE IRREGULAR [None]
  - MYOCARDIAL INFARCTION [None]
  - PERICARDIAL EFFUSION [None]
